FAERS Safety Report 8313780-X (Version None)
Quarter: 2012Q2

REPORT INFORMATION
  Report Type: 
  Country: None (occurrence: None)
  Receive Date: 20120426
  Receipt Date: 20120423
  Transmission Date: 20120825
  Serious: Yes (Death, Other)
  Sender: FDA-Public Use
  Company Number: FR-JNJFOC-20120408076

PATIENT

DRUGS (40)
  1. DOXORUBICIN HCL [Suspect]
     Route: 042
  2. PREDNISONE TAB [Suspect]
     Route: 065
  3. PREDNISONE TAB [Suspect]
     Route: 065
  4. PIXANTRONE DIMALEATE [Suspect]
     Route: 065
  5. DOXORUBICIN HCL [Suspect]
     Indication: DIFFUSE LARGE B-CELL LYMPHOMA
     Route: 042
  6. VINCRISTINE [Suspect]
     Indication: DIFFUSE LARGE B-CELL LYMPHOMA
     Route: 065
  7. RITUXIMAB [Suspect]
     Route: 065
  8. VINCRISTINE [Suspect]
     Route: 065
  9. PREDNISONE TAB [Suspect]
     Route: 065
  10. CYCLOPHOSPHAMIDE [Suspect]
     Indication: DIFFUSE LARGE B-CELL LYMPHOMA
     Route: 065
  11. PREDNISONE TAB [Suspect]
     Route: 065
  12. PREDNISONE TAB [Suspect]
     Route: 065
  13. RITUXIMAB [Suspect]
     Route: 065
  14. CYCLOPHOSPHAMIDE [Suspect]
     Route: 065
  15. VINCRISTINE [Suspect]
     Route: 065
  16. RITUXIMAB [Suspect]
     Indication: DIFFUSE LARGE B-CELL LYMPHOMA
     Route: 065
  17. RITUXIMAB [Suspect]
     Route: 065
  18. RITUXIMAB [Suspect]
     Route: 065
  19. DOXORUBICIN HCL [Suspect]
     Route: 042
  20. CYCLOPHOSPHAMIDE [Suspect]
     Route: 065
  21. VINCRISTINE [Suspect]
     Route: 065
  22. DOXORUBICIN HCL [Suspect]
     Route: 042
  23. CYCLOPHOSPHAMIDE [Suspect]
     Route: 065
  24. CYCLOPHOSPHAMIDE [Suspect]
     Route: 065
  25. CYCLOPHOSPHAMIDE [Suspect]
     Route: 065
  26. VINCRISTINE [Suspect]
     Route: 065
  27. RITUXIMAB [Suspect]
     Route: 065
  28. CYCLOPHOSPHAMIDE [Suspect]
     Route: 065
  29. PIXANTRONE DIMALEATE [Suspect]
     Route: 065
  30. VINCRISTINE [Suspect]
     Route: 065
  31. PREDNISONE TAB [Suspect]
     Route: 065
  32. PREDNISONE TAB [Suspect]
     Route: 065
  33. RITUXIMAB [Suspect]
     Route: 065
  34. VINCRISTINE [Suspect]
     Route: 065
  35. PREDNISONE TAB [Suspect]
     Indication: DIFFUSE LARGE B-CELL LYMPHOMA
     Route: 065
  36. CYCLOPHOSPHAMIDE [Suspect]
     Route: 065
  37. PIXANTRONE DIMALEATE [Suspect]
     Indication: DIFFUSE LARGE B-CELL LYMPHOMA
     Route: 065
  38. PIXANTRONE DIMALEATE [Suspect]
     Route: 065
  39. VINCRISTINE [Suspect]
     Route: 065
  40. RITUXIMAB [Suspect]
     Route: 065

REACTIONS (9)
  - THROMBOCYTOPENIA [None]
  - NEUTROPENIA [None]
  - EJECTION FRACTION DECREASED [None]
  - FEBRILE NEUTROPENIA [None]
  - STOMATITIS [None]
  - INFECTION [None]
  - CARDIAC FAILURE CONGESTIVE [None]
  - DIFFUSE LARGE B-CELL LYMPHOMA [None]
  - TROPONIN INCREASED [None]
